FAERS Safety Report 8183255-X (Version None)
Quarter: 2012Q1

REPORT INFORMATION
  Report Type: 
  Country: None (occurrence: None)
  Receive Date: 20120305
  Receipt Date: 20120222
  Transmission Date: 20120608
  Serious: Yes (Death)
  Sender: FDA-Public Use
  Company Number: GT-SANOFI-AVENTIS-2012SA012459

PATIENT
  Age: 66 Year
  Sex: Female
  Weight: 69.5 kg

DRUGS (2)
  1. ANTINEOPLASTIC AGENTS [Suspect]
     Dosage: FORM: VIAL
     Route: 042
  2. LANTUS [Suspect]
     Route: 058

REACTIONS (1)
  - BRAIN CANCER METASTATIC [None]
